FAERS Safety Report 7441122-0 (Version None)
Quarter: 2011Q2

REPORT INFORMATION
  Report Type: 
  Country: None (occurrence: None)
  Receive Date: 20110427
  Receipt Date: 20110414
  Transmission Date: 20111010
  Serious: Yes (Life-Threatening)
  Sender: FDA-Public Use
  Company Number: PL-MYLANLABS-2011S1008077

PATIENT
  Age: 51 Year
  Sex: Male

DRUGS (9)
  1. INDAPAMIDE [Concomitant]
     Route: 065
  2. INSULIN [Concomitant]
     Route: 065
  3. SIMVASTATIN [Suspect]
     Route: 065
  4. ASPIRIN [Concomitant]
     Route: 065
  5. ISOSORBIDE MONONITRATE [Concomitant]
     Route: 065
  6. SPIRONOLACTONE [Suspect]
     Route: 065
  7. BISOPROLOL [Concomitant]
     Route: 065
  8. QUINAPRIL [Suspect]
     Route: 065
  9. AMLODIPINE [Concomitant]
     Route: 065

REACTIONS (3)
  - ATRIOVENTRICULAR BLOCK [None]
  - HYPERKALAEMIA [None]
  - RHABDOMYOLYSIS [None]
